FAERS Safety Report 6872871-0 (Version None)
Quarter: 2010Q3

REPORT INFORMATION
  Report Type: 
  Country: None (occurrence: None)
  Receive Date: 20100723
  Receipt Date: 20081029
  Transmission Date: 20110219
  Serious: No
  Sender: FDA-Public Use
  Company Number: US-PFIZER INC-2008092809

PATIENT
  Sex: Female
  Weight: 53.52 kg

DRUGS (1)
  1. CHANTIX [Suspect]
     Indication: SMOKING CESSATION THERAPY
     Dates: start: 20081001, end: 20081025

REACTIONS (4)
  - FEELING ABNORMAL [None]
  - MUSCLE SPASMS [None]
  - THINKING ABNORMAL [None]
  - VERTIGO [None]
